FAERS Safety Report 5932183-6 (Version None)
Quarter: 2008Q4

REPORT INFORMATION
  Report Type: 
  Country: None (occurrence: None)
  Receive Date: 20081023
  Receipt Date: 20081015
  Transmission Date: 20090506
  Serious: Yes (Life-Threatening, Hospitalization)
  Sender: FDA-Public Use
  Company Number: DAV-AE-VOS-08-004

PATIENT
  Age: 39 Year
  Sex: Male

DRUGS (1)
  1. VOSPIRE ER [Suspect]
     Indication: ASTHMA

REACTIONS (4)
  - DRUG TOXICITY [None]
  - HYPERCAPNIA [None]
  - LACTIC ACIDOSIS [None]
  - RESPIRATORY ACIDOSIS [None]
